FAERS Safety Report 9835987 (Version 2)
Quarter: 2014Q1

REPORT INFORMATION
  Report Type: Report from Study
  Country: US (occurrence: US)
  Receive Date: 20140122
  Receipt Date: 20140213
  Transmission Date: 20141002
  Serious: Yes (Death, Other)
  Sender: FDA-Public Use
  Company Number: PHEH2014US001507

PATIENT
  Sex: Male

DRUGS (4)
  1. AFINITOR [Suspect]
     Indication: BRAIN NEOPLASM
     Dosage: 10 MG, QD
     Route: 048
  2. AFINITOR [Suspect]
     Indication: OFF LABEL USE
  3. TARCEVA [Concomitant]
  4. VOTRIENT [Concomitant]

REACTIONS (6)
  - Malignant neoplasm progression [Fatal]
  - Hemianopia homonymous [Unknown]
  - Hemiparesis [Unknown]
  - Neoplasm [Unknown]
  - Aphasia [Unknown]
  - Grand mal convulsion [Unknown]
